FAERS Safety Report 6332707-3 (Version None)
Quarter: 2009Q3

REPORT INFORMATION
  Report Type: 
  Country: None (occurrence: None)
  Receive Date: 20090828
  Receipt Date: 20090826
  Transmission Date: 20100115
  Serious: Yes (Hospitalization, Other)
  Sender: FDA-Public Use
  Company Number: GB-WYE-G04318909

PATIENT
  Sex: Female

DRUGS (2)
  1. IBUPROFEN [Suspect]
     Dosage: 200 MG EVERY 1 TOT
     Dates: start: 20090821, end: 20090821
  2. BISACODYL [Concomitant]
     Dosage: UNKNOWN

REACTIONS (2)
  - ANAPHYLACTIC SHOCK [None]
  - BURNING SENSATION [None]
